FAERS Safety Report 21492914 (Version 4)
Quarter: 2023Q2

REPORT INFORMATION
  Report Type: Spontaneous
  Country: US (occurrence: US)
  Receive Date: 20221021
  Receipt Date: 20230622
  Transmission Date: 20230722
  Serious: Yes (Death)
  Sender: FDA-Public Use
  Company Number: US-PFIZER INC-PV202200087214

PATIENT
  Age: 74 Year
  Sex: Male
  Weight: 92.98 kg

DRUGS (1)
  1. XALKORI [Suspect]
     Active Substance: CRIZOTINIB
     Indication: Lung neoplasm malignant
     Dosage: 250 MG

REACTIONS (3)
  - Death [Fatal]
  - Neoplasm progression [Unknown]
  - Hypoacusis [Unknown]
